FAERS Safety Report 10361797 (Version 1)
Quarter: 2014Q1

REPORT INFORMATION
  Report Type: Spontaneous
  Country: US (occurrence: None)
  Receive Date: 20140306
  Receipt Date: 20140306
  Transmission Date: 20141002
  Serious: Yes (Hospitalization, Other)
  Sender: FDA-Public Use
  Company Number: 163-21880-13072606

PATIENT
  Age: 78 Year
  Sex: Female
  Weight: 72.58 kg

DRUGS (9)
  1. REVLIMID [Suspect]
     Indication: PLASMA CELL MYELOMA
     Dosage: 25 MG, 14 IN 21 D, PO
     Route: 048
     Dates: start: 20130626, end: 20130730
  2. VELCADE (BORTEZOMIB) (UNKNOWN) [Concomitant]
  3. DEXAMETHASONE (DEXAMETHASONE) (UNKNOWN) [Concomitant]
  4. COZAAR (LOSARTAN POTASSIUM) (UNKNOWN) [Concomitant]
  5. NORVASC (AMLODIPINE BESILATE) (UNKNOWN) [Concomitant]
  6. ATENOLOL (ATENOLOL) (UNKNOWN) [Concomitant]
  7. PREVACID (LANSOPRAZOLE) (UNKNOWN) [Concomitant]
  8. PROBIOTIC (BIFIDOBACTERIUM LACTIS) (UNKNOWN) [Concomitant]
  9. CITRACAL PLUS (CALCIUM CITRATE W/COLECALCIFEROL) (UNKNOWN) [Concomitant]

REACTIONS (5)
  - Chest pain [None]
  - Pyrexia [None]
  - Constipation [None]
  - Dyspnoea [None]
  - Gravitational oedema [None]
